FAERS Safety Report 6990763-3 (Version None)
Quarter: 2010Q3

REPORT INFORMATION
  Report Type: 
  Country: None (occurrence: None)
  Receive Date: 20100916
  Receipt Date: 20090130
  Transmission Date: 20110219
  Serious: Yes (Other)
  Sender: FDA-Public Use
  Company Number: HQWYE599426AUG04

PATIENT
  Sex: Female
  Weight: 83.99 kg

DRUGS (10)
  1. PREMARIN [Suspect]
     Indication: MENOPAUSE
  2. CYCRIN [Suspect]
     Indication: MENOPAUSE
  3. MEDROXYPROGESTERONE ACETATE [Suspect]
     Indication: MENOPAUSE
  4. MEDROXYPROGESTERONE [Suspect]
  5. ATENOLOL [Concomitant]
  6. SYNTHROID [Concomitant]
  7. HYDROCHLOROTHIAZIDE [Concomitant]
  8. WELLBUTRIN [Concomitant]
  9. PROVERA [Suspect]
  10. PREMPRO [Suspect]
     Indication: MENOPAUSE

REACTIONS (2)
  - BREAST CANCER [None]
  - BREAST PAIN [None]
